FAERS Safety Report 15798420 (Version 1)
Quarter: 2019Q1

REPORT INFORMATION
  Report Type: Spontaneous
  Country: US (occurrence: US)
  Receive Date: 20190108
  Receipt Date: 20190108
  Transmission Date: 20190417
  Serious: Yes (Death)
  Sender: FDA-Public Use
  Company Number: None

PATIENT
  Age: 72 Year
  Sex: Female

DRUGS (20)
  1. CELEBREX [Concomitant]
     Active Substance: CELECOXIB
  2. METOPROLOL TARTRATE. [Concomitant]
     Active Substance: METOPROLOL TARTRATE
  3. OMEPRAZOLE. [Concomitant]
     Active Substance: OMEPRAZOLE
  4. LISINOPRIL. [Concomitant]
     Active Substance: LISINOPRIL
  5. MONELUKAST [Concomitant]
     Active Substance: MONTELUKAST SODIUM
  6. MULTI VIT/FL [Concomitant]
  7. REPATHA [Concomitant]
     Active Substance: EVOLOCUMAB
  8. TRAMADOL. [Concomitant]
     Active Substance: TRAMADOL
  9. VITAMIN C [Concomitant]
     Active Substance: ASCORBIC ACID
  10. AMIODARONE [Concomitant]
     Active Substance: AMIODARONE
  11. ASPIRIN. [Concomitant]
     Active Substance: ASPIRIN
  12. METHOTREXATE. [Concomitant]
     Active Substance: METHOTREXATE
  13. TYLENOL [Concomitant]
     Active Substance: ACETAMINOPHEN
  14. SPIRIVA [Concomitant]
     Active Substance: TIOTROPIUM BROMIDE MONOHYDRATE
  15. ENBREL [Suspect]
     Active Substance: ETANERCEPT
     Indication: RHEUMATOID ARTHRITIS
     Dosage: ?          OTHER FREQUENCY:WEEKLY;?
     Route: 058
     Dates: start: 20120824, end: 20181228
  16. CALCIUM [Concomitant]
     Active Substance: CALCIUM
  17. FOLIC ACID. [Concomitant]
     Active Substance: FOLIC ACID
  18. PREDNISONE. [Concomitant]
     Active Substance: PREDNISONE
  19. STOOL SOFTENER (DOCUSATE) [Concomitant]
     Active Substance: DOCUSATE
  20. RANITIDINE. [Concomitant]
     Active Substance: RANITIDINE

REACTIONS (1)
  - Death [None]

NARRATIVE: CASE EVENT DATE: 20181228
